FAERS Safety Report 6790606-7 (Version None)
Quarter: 2010Q2

REPORT INFORMATION
  Report Type: 
  Country: None (occurrence: None)
  Receive Date: 20100624
  Receipt Date: 20100610
  Transmission Date: 20101027
  Serious: Yes (Hospitalization)
  Sender: FDA-Public Use
  Company Number: JP-ASTRAZENECA-2010SE29045

PATIENT
  Age: 66 Year
  Sex: Male

DRUGS (1)
  1. XYLOCAINE [Suspect]
     Route: 008

REACTIONS (3)
  - BLOOD PRESSURE DECREASED [None]
  - CYANOSIS [None]
  - PALLOR [None]
